FAERS Safety Report 5468842-1 (Version None)
Quarter: 2007Q3

REPORT INFORMATION
  Report Type: 
  Country: None (occurrence: None)
  Receive Date: 20070926
  Receipt Date: 20070914
  Transmission Date: 20080115
  Serious: Yes (Other)
  Sender: FDA-Public Use
  Company Number: US-PFIZER INC-2007077650

PATIENT
  Sex: Female
  Weight: 117.72 kg

DRUGS (2)
  1. LYRICA [Suspect]
     Indication: FIBROMYALGIA
     Route: 048
  2. HYOSCYAMINE [Suspect]
     Indication: GASTROINTESTINAL DISORDER

REACTIONS (5)
  - DIZZINESS [None]
  - DRUG INEFFECTIVE [None]
  - FEELING ABNORMAL [None]
  - HEART RATE INCREASED [None]
  - PALPITATIONS [None]
